FAERS Safety Report 7109908-X (Version None)
Quarter: 2010Q4

REPORT INFORMATION
  Report Type: 
  Country: None (occurrence: None)
  Receive Date: 20101118
  Receipt Date: 20101110
  Transmission Date: 20110411
  Serious: Yes (Death, Life-Threatening, Hospitalization, Disabling)
  Sender: FDA-Public Use
  Company Number: FR-BRISTOL-MYERS SQUIBB COMPANY-14801153

PATIENT
  Age: 70 Year
  Sex: Male
  Weight: 72 kg

DRUGS (3)
  1. CETUXIMAB [Suspect]
     Indication: NON-SMALL CELL LUNG CANCER
     Dosage: 5MG/ML. RECENT INF-17SEP09
     Route: 042
     Dates: start: 20090903, end: 20090917
  2. CISPLATIN [Suspect]
     Indication: NON-SMALL CELL LUNG CANCER
     Dosage: DAY 1 OF 21 DAY CYCLE
     Route: 042
     Dates: start: 20090903, end: 20090903
  3. VINORELBINE [Suspect]
     Indication: NON-SMALL CELL LUNG CANCER
     Dosage: DAY 1,8 OF 21DAY CYCLE
     Route: 042
     Dates: start: 20090903, end: 20090910

REACTIONS (2)
  - ASTHENIA [None]
  - PULMONARY EMBOLISM [None]
